FAERS Safety Report 14605295 (Version 1)
Quarter: 2018Q1

REPORT INFORMATION
  Report Type: Spontaneous
  Country: US (occurrence: US)
  Receive Date: 20180306
  Receipt Date: 20180306
  Transmission Date: 20180509
  Serious: No
  Sender: FDA-Public Use
  Company Number: US-MITSUBISHI TANABE PHARMA CORPORATION-MPE2018-0004247

PATIENT
  Sex: Male

DRUGS (2)
  1. RILUZOLE. [Concomitant]
     Active Substance: RILUZOLE
  2. RADICAVA [Suspect]
     Active Substance: EDARAVONE
     Indication: AMYOTROPHIC LATERAL SCLEROSIS
     Dosage: 2 BAGS
     Route: 042

REACTIONS (1)
  - Device occlusion [Unknown]
